FAERS Safety Report 24910845 (Version 1)
Quarter: 2025Q1

REPORT INFORMATION
  Report Type: Spontaneous
  Country: US (occurrence: None)
  Receive Date: 20250130
  Receipt Date: 20250130
  Transmission Date: 20250409
  Serious: Yes (Other)
  Sender: FDA-CTU
  Company Number: None

PATIENT
  Age: 73 Year
  Sex: Female
  Weight: 72 kg

DRUGS (1)
  1. NIACINAMIDE\TIRZEPATIDE [Suspect]
     Active Substance: NIACINAMIDE\TIRZEPATIDE
     Indication: Weight decreased
     Route: 058
     Dates: start: 20240802

REACTIONS (3)
  - Injection site pain [None]
  - Injection site paraesthesia [None]
  - Injection site pain [None]

NARRATIVE: CASE EVENT DATE: 20241112
